FAERS Safety Report 8908498 (Version 1)
Quarter: 2012Q4

REPORT INFORMATION
  Report Type: Report from Study
  Country: US (occurrence: US)
  Receive Date: 20121114
  Receipt Date: 20121114
  Transmission Date: 20130627
  Serious: Yes (Life-Threatening, Hospitalization)
  Sender: FDA-Public Use
  Company Number: US-ROCHE-1073006

PATIENT
  Age: 68 Year
  Sex: Female
  Weight: 77.7 kg

DRUGS (3)
  1. BEVACIZUMAB [Suspect]
     Indication: NON-SMALL CELL LUNG CANCER
     Dosage: over 30-90 min on day 1
     Route: 042
     Dates: start: 20120118
  2. GEMCITABINE [Suspect]
     Indication: NON-SMALL CELL LUNG CANCER
     Dosage: over 30 min on days 1 and 8, every 3 weeks
     Route: 042
     Dates: start: 20120118
  3. CISPLATIN [Suspect]
     Indication: NON-SMALL CELL LUNG CANCER
     Dosage: over 60 min on day 1, every 3 weeks.
     Route: 042
     Dates: start: 20120118, end: 20120711

REACTIONS (2)
  - Hypocalcaemia [Recovered/Resolved]
  - Neuralgia [Recovering/Resolving]
